FAERS Safety Report 6638977-6 (Version None)
Quarter: 2010Q1

REPORT INFORMATION
  Report Type: 
  Country: None (occurrence: None)
  Receive Date: 20100316
  Receipt Date: 20100316
  Transmission Date: 20100710
  Serious: Yes (Hospitalization)
  Sender: FDA-Public Use
  Company Number: None

PATIENT
  Age: 25 Year
  Sex: Female
  Weight: 68.0396 kg

DRUGS (1)
  1. DORYX [Suspect]
     Indication: ACNE
     Dosage: DORYX 150MG 1 PER DARY PO
     Route: 048
     Dates: start: 20100302, end: 20100304

REACTIONS (5)
  - ABDOMINAL PAIN UPPER [None]
  - COLITIS ISCHAEMIC [None]
  - DIARRHOEA [None]
  - RECTAL HAEMORRHAGE [None]
  - WHITE BLOOD CELL COUNT INCREASED [None]
